FAERS Safety Report 9076241 (Version 1)
Quarter: 2013Q1

REPORT INFORMATION
  Report Type: Other
  Country: JP (occurrence: JP)
  Receive Date: 20130131
  Receipt Date: 20130131
  Transmission Date: 20140127
  Serious: Yes (Hospitalization)
  Sender: FDA-Public Use
  Company Number: JP-ACTELION-A-CH2013-78364

PATIENT
  Age: 68 Year
  Sex: Female

DRUGS (3)
  1. TRACLEER [Suspect]
     Indication: PULMONARY HYPERTENSION
     Dosage: UNK
     Route: 048
  2. BERAPROST [Concomitant]
  3. WARFARIN [Concomitant]

REACTIONS (8)
  - Pulmonary hypertension [Recovering/Resolving]
  - Dyspnoea [Recovering/Resolving]
  - Oxygen saturation decreased [Recovering/Resolving]
  - Tricuspid valve incompetence [Recovering/Resolving]
  - Angioplasty [Recovering/Resolving]
  - Pulmonary arterial pressure increased [Recovering/Resolving]
  - Vascular stenosis [Recovering/Resolving]
  - Condition aggravated [Recovering/Resolving]
